FAERS Safety Report 5878068-5 (Version None)
Quarter: 2008Q3

REPORT INFORMATION
  Report Type: 
  Country: None (occurrence: None)
  Receive Date: 20080911
  Receipt Date: 20080908
  Transmission Date: 20090109
  Serious: Yes (Other)
  Sender: FDA-Public Use
  Company Number: US-BRISTOL-MYERS SQUIBB COMPANY-14327308

PATIENT
  Age: 39 Year
  Sex: Male

DRUGS (10)
  1. ATAZANAVIR [Suspect]
     Indication: HIV INFECTION
  2. DIDANOSINE [Suspect]
     Indication: HIV INFECTION
  3. EFAVIRENZ [Suspect]
     Indication: HIV INFECTION
  4. STAVUDINE [Suspect]
     Indication: HIV INFECTION
  5. FOSAMPRENAVIR CALCIUM [Suspect]
     Indication: HIV INFECTION
  6. INDINIVIR SULFATE [Suspect]
     Indication: HIV INFECTION
  7. LAMIVUDINE [Suspect]
     Indication: HIV INFECTION
  8. NEVIRAPINE [Suspect]
     Indication: HIV INFECTION
  9. RITONAVIR [Suspect]
     Indication: HIV INFECTION
  10. TENOFOVIR [Suspect]
     Indication: HIV INFECTION

REACTIONS (5)
  - DRUG DOSE OMISSION [None]
  - HYPERLIPIDAEMIA [None]
  - LIPODYSTROPHY ACQUIRED [None]
  - NEUROPATHY PERIPHERAL [None]
  - RASH [None]
